FAERS Safety Report 8472551-4 (Version None)
Quarter: 2012Q2

REPORT INFORMATION
  Report Type: 
  Country: None (occurrence: None)
  Receive Date: 20120627
  Receipt Date: 20120210
  Transmission Date: 20120825
  Serious: No
  Sender: FDA-Public Use
  Company Number: US-AMGEN-USASP2012009418

PATIENT
  Age: 58 Year
  Sex: Male
  Weight: 73 kg

DRUGS (2)
  1. PROCRIT [Suspect]
     Indication: CHEMOTHERAPY
  2. PROCRIT [Suspect]
     Indication: ANAEMIA
     Dosage: 40000 IU, QWK
     Dates: start: 20111219

REACTIONS (2)
  - DRUG INEFFECTIVE [None]
  - HAEMOGLOBIN ABNORMAL [None]
